FAERS Safety Report 14684727 (Version 2)
Quarter: 2018Q2

REPORT INFORMATION
  Report Type: Report from Study
  Country: US (occurrence: US)
  Receive Date: 20180327
  Receipt Date: 20180404
  Transmission Date: 20180711
  Serious: Yes (Other)
  Sender: FDA-Public Use
  Company Number: US-JAZZ-2018-US-002406

PATIENT
  Sex: Female

DRUGS (43)
  1. OXYBUTYNIN. [Concomitant]
     Active Substance: OXYBUTYNIN CHLORIDE
  2. BUPROPION HCL [Concomitant]
     Active Substance: BUPROPION HYDROCHLORIDE
  3. DICYCLOVERINE [Concomitant]
     Active Substance: DICYCLOMINE HYDROCHLORIDE
  4. WITHANIA SOMNIFERA [Concomitant]
     Active Substance: HERBALS
  5. MOVE FREE ULTRA [Concomitant]
  6. SUMATRIPTAN SUCCINATE. [Concomitant]
     Active Substance: SUMATRIPTAN SUCCINATE
  7. SCHIZANDRA [Concomitant]
  8. SELENIUM [Concomitant]
     Active Substance: SELENIUM
  9. XYREM [Suspect]
     Active Substance: SODIUM OXYBATE
     Dosage: 3 G, BID
     Route: 048
     Dates: start: 201509, end: 201510
  10. ALBUTEROL SULFATE. [Concomitant]
     Active Substance: ALBUTEROL SULFATE
  11. ESCITALOPRAM [Concomitant]
     Active Substance: ESCITALOPRAM OXALATE
  12. RHODIOLA ROSEA [Concomitant]
     Active Substance: HERBALS
  13. SALMO SALAR OIL [Concomitant]
     Active Substance: ATLANTIC SALMON OIL
  14. MUCUNA PRURIENS [Concomitant]
  15. SYMBICORT [Concomitant]
     Active Substance: BUDESONIDE\FORMOTEROL FUMARATE DIHYDRATE
  16. GINKGO BILOBA [Concomitant]
     Active Substance: GINKGO
  17. SINGULAIR [Concomitant]
     Active Substance: MONTELUKAST SODIUM
  18. VITAMIN B COMPLEX [Concomitant]
     Active Substance: CYANOCOBALAMIN\DEXPANTHENOL\NIACINAMIDE\PYRIDOXINE HYDROCHLORIDE\RIBOFLAVIN 5^-PHOSPHATE SODIUM\THIAMINE HYDROCHLORIDE\VITAMIN B COMPLEX
  19. XYREM [Suspect]
     Active Substance: SODIUM OXYBATE
     Dosage: 4.5 G, BID
     Route: 048
     Dates: start: 201510
  20. VITAMIN D3 [Concomitant]
     Active Substance: CHOLECALCIFEROL
  21. RESTASIS [Concomitant]
     Active Substance: CYCLOSPORINE
  22. PHYTOMENADIONE [Concomitant]
     Active Substance: PHYTONADIONE
  23. XYREM [Suspect]
     Active Substance: SODIUM OXYBATE
     Indication: NARCOLEPSY
     Dosage: 2.25 G, BID
     Route: 048
     Dates: start: 201508, end: 201509
  24. HGH [Concomitant]
  25. GLUTAMINE [Concomitant]
     Active Substance: GLUTAMINE
  26. PHOSPHATIDYL SERINE [Concomitant]
     Active Substance: PHOSPHATIDYL SERINE
  27. MODAFINIL. [Concomitant]
     Active Substance: MODAFINIL
  28. OXYBUTYNIN CHLORIDE. [Concomitant]
     Active Substance: OXYBUTYNIN CHLORIDE
  29. TOPAMAX [Concomitant]
     Active Substance: TOPIRAMATE
  30. LATANOPROST. [Concomitant]
     Active Substance: LATANOPROST
  31. MOLYBDENUM [Concomitant]
     Active Substance: MOLYBDENUM
  32. MORINGA OLEIFERA [Concomitant]
  33. NALTREXONE HCL [Concomitant]
     Active Substance: NALTREXONE HYDROCHLORIDE
  34. AMOXICILLIN. [Concomitant]
     Active Substance: AMOXICILLIN
  35. CALCIUM + MAGNESIUM + ZINK [Concomitant]
  36. VITAMIN B12 [Concomitant]
     Active Substance: CYANOCOBALAMIN
  37. DMAE [Concomitant]
  38. MELOXICAM. [Concomitant]
     Active Substance: MELOXICAM
  39. AGARICUS BLAZEI [Concomitant]
  40. BRIMONIDINE [Concomitant]
     Active Substance: BRIMONIDINE TARTRATE
  41. D-RIBOSE [Concomitant]
     Active Substance: DIETARY SUPPLEMENT
  42. N-ACETYL-L-CYSTEINE [Concomitant]
     Active Substance: ACETYLCYSTEINE
  43. PHOSPHATIDYLSERINE [Concomitant]

REACTIONS (4)
  - Irritable bowel syndrome [Unknown]
  - Autoimmune disorder [Not Recovered/Not Resolved]
  - Ocular hyperaemia [Unknown]
  - Chronic fatigue syndrome [Not Recovered/Not Resolved]
